FAERS Safety Report 24603570 (Version 1)
Quarter: 2024Q4

REPORT INFORMATION
  Report Type: Spontaneous
  Country: RO (occurrence: RO)
  Receive Date: 20241111
  Receipt Date: 20241111
  Transmission Date: 20250115
  Serious: Yes (Hospitalization, Other)
  Sender: SANDOZ
  Company Number: RO-009507513-2410ROU012245

PATIENT
  Age: 62 Year

DRUGS (28)
  1. CARBOPLATIN [Suspect]
     Active Substance: CARBOPLATIN
     Indication: Gastric cancer
     Dosage: UNK
     Route: 065
     Dates: start: 202208, end: 202208
  2. CARBOPLATIN [Suspect]
     Active Substance: CARBOPLATIN
     Indication: Non-small cell lung cancer stage IV
     Dosage: UNK
     Route: 065
     Dates: start: 202205, end: 202205
  3. CARBOPLATIN [Suspect]
     Active Substance: CARBOPLATIN
     Dosage: UNK
     Route: 065
     Dates: start: 202209, end: 202209
  4. PEMETREXED [Suspect]
     Active Substance: PEMETREXED
     Indication: Gastric cancer
     Dosage: UNK
     Route: 065
     Dates: start: 202205, end: 202205
  5. PEMETREXED [Suspect]
     Active Substance: PEMETREXED
     Indication: Non-small cell lung cancer stage IV
     Dosage: UNK
     Route: 065
  6. PEMETREXED [Suspect]
     Active Substance: PEMETREXED
     Dosage: UNK
     Route: 065
     Dates: start: 202208, end: 202208
  7. PEMETREXED [Suspect]
     Active Substance: PEMETREXED
     Dosage: UNK
     Route: 065
     Dates: start: 202209, end: 202209
  8. PEMETREXED [Suspect]
     Active Substance: PEMETREXED
     Dosage: UNK
     Route: 065
     Dates: start: 202307, end: 202307
  9. PEMETREXED [Suspect]
     Active Substance: PEMETREXED
     Dosage: UNK
     Route: 065
     Dates: start: 202308, end: 202308
  10. PEMETREXED [Suspect]
     Active Substance: PEMETREXED
     Dosage: UNK
     Route: 065
     Dates: start: 202309, end: 202309
  11. PEMETREXED [Suspect]
     Active Substance: PEMETREXED
     Dosage: UNK
     Route: 065
     Dates: start: 202309, end: 202309
  12. PEMETREXED [Suspect]
     Active Substance: PEMETREXED
     Dosage: UNK
     Route: 065
  13. PEMETREXED [Suspect]
     Active Substance: PEMETREXED
     Dosage: UNK
     Route: 065
  14. PEMBROLIZUMAB [Suspect]
     Active Substance: PEMBROLIZUMAB
     Dosage: 200 MILLIGRAM, Q3W
     Route: 065
     Dates: start: 202307, end: 202307
  15. PEMBROLIZUMAB [Suspect]
     Active Substance: PEMBROLIZUMAB
     Dosage: 200 MILLIGRAM, Q3W
     Route: 065
     Dates: start: 202308, end: 202308
  16. PEMBROLIZUMAB [Suspect]
     Active Substance: PEMBROLIZUMAB
     Dosage: 200 MILLIGRAM, Q3W
     Route: 065
     Dates: start: 202309, end: 202309
  17. PEMBROLIZUMAB [Suspect]
     Active Substance: PEMBROLIZUMAB
     Dosage: 200 MILLIGRAM, Q3W
     Route: 065
     Dates: start: 202309, end: 202309
  18. PEMBROLIZUMAB [Suspect]
     Active Substance: PEMBROLIZUMAB
     Dosage: 200 MILLIGRAM, Q3W
     Route: 065
     Dates: start: 202310, end: 202310
  19. PEMBROLIZUMAB [Suspect]
     Active Substance: PEMBROLIZUMAB
     Dosage: 200 MILLIGRAM, Q3W
     Route: 065
     Dates: start: 202311, end: 202311
  20. PEMBROLIZUMAB [Suspect]
     Active Substance: PEMBROLIZUMAB
     Dosage: 200 MILLIGRAM, Q3W
     Route: 065
     Dates: start: 202311, end: 202311
  21. PEMBROLIZUMAB [Suspect]
     Active Substance: PEMBROLIZUMAB
     Dosage: 200 MILLIGRAM, Q3W
     Route: 065
     Dates: start: 202312, end: 202312
  22. PEMBROLIZUMAB [Suspect]
     Active Substance: PEMBROLIZUMAB
     Dosage: 200 MILLIGRAM, Q3W
     Route: 065
     Dates: start: 202401, end: 202401
  23. PEMBROLIZUMAB [Suspect]
     Active Substance: PEMBROLIZUMAB
     Dosage: 200 MILLIGRAM, Q3W
     Route: 065
     Dates: start: 202402, end: 202402
  24. PEMBROLIZUMAB [Suspect]
     Active Substance: PEMBROLIZUMAB
     Dosage: 200 MILLIGRAM, Q3W
     Route: 065
     Dates: start: 202402, end: 202402
  25. PEMBROLIZUMAB [Suspect]
     Active Substance: PEMBROLIZUMAB
     Dosage: 200 MILLIGRAM, Q3W
     Route: 065
     Dates: start: 202405, end: 202405
  26. PEMBROLIZUMAB [Suspect]
     Active Substance: PEMBROLIZUMAB
     Indication: Gastric cancer
     Dosage: UNK
     Route: 065
     Dates: start: 202208, end: 202208
  27. PEMBROLIZUMAB [Suspect]
     Active Substance: PEMBROLIZUMAB
     Indication: Non-small cell lung cancer stage IV
     Dosage: UNK
     Route: 065
     Dates: start: 202205, end: 202205
  28. PEMBROLIZUMAB [Suspect]
     Active Substance: PEMBROLIZUMAB
     Dosage: UNK
     Route: 065
     Dates: start: 202209, end: 202209

REACTIONS (18)
  - Red blood cell transfusion [Unknown]
  - Abdominal pain [Unknown]
  - Atrial fibrillation [Unknown]
  - Coronary artery occlusion [Unknown]
  - Malignant neoplasm progression [Unknown]
  - Palpitations [Unknown]
  - Eastern Cooperative Oncology Group performance status worsened [Unknown]
  - Left ventricular hypertrophy [Unknown]
  - Diastolic dysfunction [Unknown]
  - COVID-19 [Unknown]
  - Gastrointestinal injury [Unknown]
  - Appetite disorder [Unknown]
  - Dyspnoea exertional [Unknown]
  - Asthenia [Unknown]
  - Diarrhoea [Unknown]
  - Stomatitis [Unknown]
  - Fatigue [Unknown]
  - Therapy partial responder [Unknown]

NARRATIVE: CASE EVENT DATE: 20221201
